FAERS Safety Report 25928650 (Version 2)
Quarter: 2025Q4

REPORT INFORMATION
  Report Type: Spontaneous
  Country: US (occurrence: US)
  Receive Date: 20251016
  Receipt Date: 20251030
  Transmission Date: 20260118
  Serious: Yes (Death)
  Sender: TEVA
  Company Number: US-TEVA-VS-3379837

PATIENT
  Age: 75 Year
  Sex: Female

DRUGS (9)
  1. HYDROMORPHONE [Suspect]
     Active Substance: HYDROMORPHONE
     Indication: Chest pain
     Dosage: IMMEDIATE RELEASE; EVERY 3 HOURS
     Route: 065
  2. HYDROMORPHONE [Suspect]
     Active Substance: HYDROMORPHONE
     Indication: Chest pain
     Dosage: DRUG REINTRODUCED
     Route: 065
  3. HYDROMORPHONE [Suspect]
     Active Substance: HYDROMORPHONE
     Indication: Chest pain
     Dosage: 1-2 DOSES
     Route: 065
  4. BEVACIZUMAB [Suspect]
     Active Substance: BEVACIZUMAB
     Indication: Non-small cell lung cancer
     Route: 065
  5. KETAMINE [Suspect]
     Active Substance: KETAMINE
     Indication: Chest pain
     Route: 048
  6. KETAMINE [Suspect]
     Active Substance: KETAMINE
     Indication: Chest pain
     Route: 048
  7. OSIMERTINIB [Suspect]
     Active Substance: OSIMERTINIB
     Indication: Non-small cell lung cancer
     Route: 065
  8. METHADONE [Suspect]
     Active Substance: METHADONE HYDROCHLORIDE
     Indication: Chest pain
     Dosage: 15 MG IN THE MORNING AND 10 MG AT NIGHT
     Route: 065
  9. METHADONE [Suspect]
     Active Substance: METHADONE HYDROCHLORIDE
     Indication: Chest pain
     Dosage: THREE TIMES DAILY
     Route: 065

REACTIONS (5)
  - Drug ineffective [Fatal]
  - Dizziness [Fatal]
  - Memory impairment [Fatal]
  - Hypersomnia [Fatal]
  - Fatigue [Fatal]
